FAERS Safety Report 4421300-5 (Version None)
Quarter: 2004Q3

REPORT INFORMATION
  Report Type: 
  Country: None (occurrence: None)
  Receive Date: 20040707
  Receipt Date: 20040529
  Transmission Date: 20050211
  Serious: No
  Sender: FDA-Public Use
  Company Number: A03200401772

PATIENT
  Age: 35 Year
  Sex: Male

DRUGS (1)
  1. ARIXTRA [Suspect]

REACTIONS (1)
  - PETECHIAE [None]
